APPROVED DRUG PRODUCT: GENTAMICIN
Active Ingredient: GENTAMICIN SULFATE
Strength: EQ 1MG BASE/ML
Dosage Form/Route: INJECTABLE;INJECTION
Application: A062325 | Product #003
Applicant: INTERNATIONAL MEDICATION SYSTEMS LTD
Approved: Jun 23, 1982 | RLD: No | RS: No | Type: DISCN